FAERS Safety Report 4993070-3 (Version None)
Quarter: 2006Q1

REPORT INFORMATION
  Report Type: 
  Country: None (occurrence: None)
  Receive Date: 20060313
  Receipt Date: 20051220
  Transmission Date: 20060701
  Serious: No
  Sender: FDA-Public Use
  Company Number: 2005-BP-21676BP

PATIENT
  Sex: Male

DRUGS (9)
  1. SPIRIVA [Suspect]
     Indication: CHRONIC OBSTRUCTIVE PULMONARY DISEASE
     Dosage: 18 MCG (18 MCG, 1 IN 1 D), IH
     Route: 055
     Dates: start: 20051001, end: 20051201
  2. DUONEB (COMBIVENT / 01261001/) [Concomitant]
  3. PREVACID [Concomitant]
  4. IMDUR [Concomitant]
  5. CARDIZEM (GENERIC) [Concomitant]
  6. ALLEGRA [Concomitant]
  7. LODINE [Concomitant]
  8. LIPITOR [Concomitant]
  9. PLAVIX [Concomitant]

REACTIONS (6)
  - ANOREXIA [None]
  - CONSTIPATION [None]
  - COUGH [None]
  - ERUCTATION [None]
  - LETHARGY [None]
  - NAUSEA [None]
